FAERS Safety Report 5099511-8 (Version None)
Quarter: 2006Q3

REPORT INFORMATION
  Report Type: 
  Country: None (occurrence: None)
  Receive Date: 20060906
  Receipt Date: 20060906
  Transmission Date: 20061208
  Serious: Yes (Life-Threatening, Hospitalization, Other)
  Sender: FDA-Public Use
  Company Number: None

PATIENT
  Age: 18 Month
  Sex: Female
  Weight: 9.0719 kg

DRUGS (1)
  1. DIBUCAINE OINTMENT [Suspect]
     Indication: ACCIDENTAL EXPOSURE
     Dates: start: 20060827

REACTIONS (15)
  - ACCIDENTAL DRUG INTAKE BY CHILD [None]
  - ATRIOVENTRICULAR BLOCK [None]
  - BLOOD GLUCOSE INCREASED [None]
  - BODY TEMPERATURE DECREASED [None]
  - BRADYCARDIA [None]
  - CONVULSION [None]
  - DRUG TOXICITY [None]
  - ELECTROCARDIOGRAM QRS COMPLEX PROLONGED [None]
  - ELECTROCARDIOGRAM QT CORRECTED INTERVAL PROLONGED [None]
  - GENERAL PHYSICAL HEALTH DETERIORATION [None]
  - HEART RATE INCREASED [None]
  - HYPOTENSION [None]
  - LOSS OF CONSCIOUSNESS [None]
  - MEDICATION ERROR [None]
  - VENTRICULAR TACHYCARDIA [None]
